FAERS Safety Report 9747225 (Version 1)
Quarter: 2013Q4

REPORT INFORMATION
  Report Type: Spontaneous
  Country: US (occurrence: US)
  Receive Date: 20131212
  Receipt Date: 20131212
  Transmission Date: 20140711
  Serious: No
  Sender: FDA-Public Use
  Company Number: US-009507513-1312USA004089

PATIENT
  Sex: Female

DRUGS (1)
  1. DULERA [Suspect]
     Dosage: 2 DF, BID
     Route: 055
     Dates: start: 201212

REACTIONS (3)
  - Cough [Unknown]
  - Product quality issue [Unknown]
  - Drug dose omission [Unknown]
